FAERS Safety Report 9206088 (Version 1)
Quarter: 2013Q2

REPORT INFORMATION
  Report Type: Spontaneous
  Country: US (occurrence: None)
  Receive Date: 20130403
  Receipt Date: 20130403
  Transmission Date: 20140414
  Serious: Yes (Death)
  Sender: FDA-Public Use
  Company Number: None

PATIENT
  Age: 46 Year
  Sex: Male
  Weight: 81 kg

DRUGS (1)
  1. WARFARIN [Suspect]
     Indication: BUDD-CHIARI SYNDROME
     Route: 048

REACTIONS (6)
  - International normalised ratio increased [None]
  - Cardiac arrest [None]
  - Contusion [None]
  - Altered state of consciousness [None]
  - Hypotension [None]
  - Hepatic failure [None]
